FAERS Safety Report 5925720-9 (Version None)
Quarter: 2008Q4

REPORT INFORMATION
  Report Type: 
  Country: None (occurrence: None)
  Receive Date: 20081021
  Receipt Date: 20081013
  Transmission Date: 20090506
  Serious: Yes (Life-Threatening, Hospitalization, Other)
  Sender: FDA-Public Use
  Company Number: PHHO2008GB12161

PATIENT
  Sex: Male
  Weight: 80.3 kg

DRUGS (3)
  1. TASIGNA [Suspect]
     Indication: CHRONIC MYELOID LEUKAEMIA
     Dosage: 600 MG, BID
     Route: 048
     Dates: start: 20051026, end: 20081002
  2. TASIGNA [Suspect]
     Dosage: UNK
     Dates: start: 20081003, end: 20081006
  3. TASIGNA [Suspect]
     Dosage: 600 MG, BID
     Route: 048
     Dates: start: 20081007

REACTIONS (4)
  - CARDIAC FAILURE [None]
  - CHEST PAIN [None]
  - MYOCARDIAL INFARCTION [None]
  - PAIN IN EXTREMITY [None]
